FAERS Safety Report 9759600 (Version 1)
Quarter: 2013Q4

REPORT INFORMATION
  Report Type: Spontaneous
  Country: US (occurrence: US)
  Receive Date: 20131216
  Receipt Date: 20131216
  Transmission Date: 20140711
  Serious: No
  Sender: FDA-Public Use
  Company Number: US-GILEAD-2010-0028226

PATIENT
  Sex: Female
  Weight: 67.13 kg

DRUGS (12)
  1. LETAIRIS [Suspect]
     Indication: PULMONARY ARTERIAL HYPERTENSION
     Route: 048
     Dates: start: 20100310
  2. REVATIO [Concomitant]
  3. ADULT ASPIRIN [Concomitant]
  4. SPIRONOLACTONE [Concomitant]
  5. FUROSEMIDE [Concomitant]
  6. NIFEDIPINE [Concomitant]
  7. NEXIUM [Concomitant]
  8. MULTIVITAMIN [Concomitant]
  9. VITAMIN C [Concomitant]
  10. VITAMIN D [Concomitant]
  11. VITAMIN E [Concomitant]
  12. CHROMIUM [Concomitant]

REACTIONS (3)
  - Contusion [Unknown]
  - Headache [Unknown]
  - Palpitations [Unknown]
